FAERS Safety Report 11317751 (Version 1)
Quarter: 2015Q3

REPORT INFORMATION
  Report Type: Spontaneous
  Country: US (occurrence: US)
  Receive Date: 20150728
  Receipt Date: 20150728
  Transmission Date: 20151125
  Serious: No
  Sender: FDA-Public Use
  Company Number: US-MEDA-2015070027

PATIENT
  Sex: Female

DRUGS (1)
  1. AVC [Suspect]
     Active Substance: ALLANTOIN\AMINACRINE HYDROCHLORIDE\SULFANILAMIDE

REACTIONS (1)
  - Vulvovaginal burning sensation [Unknown]
